FAERS Safety Report 5095224-7 (Version None)
Quarter: 2006Q3

REPORT INFORMATION
  Report Type: 
  Country: None (occurrence: None)
  Receive Date: 20060901
  Receipt Date: 20060821
  Transmission Date: 20061208
  Serious: Yes (Other)
  Sender: FDA-Public Use
  Company Number: BE-JNJFOC-20060804859

PATIENT
  Sex: Male

DRUGS (7)
  1. GALANTAMINE HYDROBROMIDE [Suspect]
     Indication: DEMENTIA ALZHEIMER'S TYPE
     Route: 048
  2. PLACEBO [Suspect]
     Indication: DEMENTIA ALZHEIMER'S TYPE
     Route: 048
  3. LORMETAZEPAM [Concomitant]
     Indication: INSOMNIA
  4. CALCIT D3 [Concomitant]
     Indication: CALCIUM DEFICIENCY
  5. DOMINAL [Concomitant]
  6. DOMINAL [Concomitant]
     Indication: INSOMNIA
  7. D CURE [Concomitant]
     Indication: VITAMIN D DEFICIENCY

REACTIONS (1)
  - LIVER FUNCTION TEST ABNORMAL [None]
